FAERS Safety Report 6005507-1 (Version None)
Quarter: 2008Q4

REPORT INFORMATION
  Report Type: 
  Country: None (occurrence: None)
  Receive Date: 20081217
  Receipt Date: 20080819
  Transmission Date: 20090506
  Serious: No
  Sender: FDA-Public Use
  Company Number: A0743293A

PATIENT
  Age: 66 Year
  Sex: Male

DRUGS (11)
  1. LEXIVA [Suspect]
     Indication: HIV INFECTION
     Dosage: 2TAB TWICE PER DAY
     Route: 048
     Dates: end: 20080811
  2. VIREAD [Concomitant]
  3. VIDEX EC [Concomitant]
  4. BENICAR [Concomitant]
  5. ATENOLOL [Concomitant]
  6. PRANDIN [Concomitant]
  7. TRILEPTAL [Concomitant]
  8. VALTREX [Concomitant]
  9. PROSCAR [Concomitant]
  10. DOXAZOSIN MESYLATE [Concomitant]
  11. METFORMIN HCL [Concomitant]

REACTIONS (1)
  - BLOOD GLUCOSE INCREASED [None]
